FAERS Safety Report 7854574-9 (Version None)
Quarter: 2011Q4

REPORT INFORMATION
  Report Type: 
  Country: None (occurrence: None)
  Receive Date: 20111026
  Receipt Date: 20111019
  Transmission Date: 20120403
  Serious: Yes (Life-Threatening)
  Sender: FDA-Public Use
  Company Number: US-BAYER-2011-047510

PATIENT
  Age: 56 Year
  Sex: Female

DRUGS (16)
  1. DILTIAZEM HCL [Concomitant]
  2. REGLAN [Concomitant]
  3. ADVAIR DISKUS 100/50 [Concomitant]
  4. VICODIN [Concomitant]
  5. ASPIRIN [Concomitant]
  6. CELEBREX [Concomitant]
  7. LORAZEPAM [Concomitant]
  8. BACLOFEN [Concomitant]
  9. AVELOX [Suspect]
     Indication: CHRONIC OBSTRUCTIVE PULMONARY DISEASE
  10. AVELOX [Suspect]
     Indication: PNEUMONIA
  11. VYTORIN [Concomitant]
  12. NEXIUM [Concomitant]
  13. AVELOX [Suspect]
     Indication: DYSPNOEA
     Dosage: 400 MG, UNK
     Route: 042
     Dates: start: 20110223
  14. FUROSEMIDE [Concomitant]
  15. POTASSIUM CHLORIDE [Concomitant]
  16. CYMBALTA [Concomitant]

REACTIONS (6)
  - CONVULSION [None]
  - HYPOXIC-ISCHAEMIC ENCEPHALOPATHY [None]
  - DYSPNOEA [None]
  - RESPIRATORY DISTRESS [None]
  - RASH GENERALISED [None]
  - ANAPHYLACTIC REACTION [None]
